FAERS Safety Report 12450641 (Version 1)
Quarter: 2016Q2

REPORT INFORMATION
  Report Type: Other
  Country: JP (occurrence: JP)
  Receive Date: 20160609
  Receipt Date: 20160609
  Transmission Date: 20160815
  Serious: Yes (Death)
  Sender: FDA-Public Use
  Company Number: JP-ACTELION-A-CH2016-137329

PATIENT
  Age: 69 Year
  Sex: Male

DRUGS (3)
  1. SILDENAFIL. [Concomitant]
     Active Substance: SILDENAFIL
  2. TRACLEER [Suspect]
     Active Substance: BOSENTAN
     Indication: PULMONARY HYPERTENSION
     Route: 048
  3. BERAPROST [Concomitant]
     Active Substance: BERAPROST

REACTIONS (3)
  - Condition aggravated [Not Recovered/Not Resolved]
  - Death [Fatal]
  - Pulmonary hypertension [Not Recovered/Not Resolved]
